FAERS Safety Report 7353054-7 (Version None)
Quarter: 2011Q1

REPORT INFORMATION
  Report Type: 
  Country: None (occurrence: None)
  Receive Date: 20110315
  Receipt Date: 20110308
  Transmission Date: 20110831
  Serious: Yes (Hospitalization)
  Sender: FDA-Public Use
  Company Number: B0700031A

PATIENT
  Age: 55 Year
  Sex: Female

DRUGS (1)
  1. AVANDIA [Suspect]
     Route: 048
     Dates: start: 19990101, end: 20070401

REACTIONS (5)
  - HYPOXIA [None]
  - CHEST PAIN [None]
  - FATIGUE [None]
  - LUNG DISORDER [None]
  - PALPITATIONS [None]
